FAERS Safety Report 14002755 (Version 7)
Quarter: 2018Q1

REPORT INFORMATION
  Report Type: Spontaneous
  Country: US (occurrence: US)
  Receive Date: 20170922
  Receipt Date: 20180308
  Transmission Date: 20180508
  Serious: Yes (Hospitalization)
  Sender: FDA-Public Use
  Company Number: US-BIOGEN-2017BI00455957

PATIENT
  Age: 37 Year
  Sex: Male

DRUGS (3)
  1. ZINBRYTA [Suspect]
     Active Substance: DACLIZUMAB
     Route: 058
     Dates: start: 20170901
  2. ZINBRYTA [Suspect]
     Active Substance: DACLIZUMAB
     Indication: MULTIPLE SCLEROSIS
     Route: 058
     Dates: start: 20170830
  3. ZINBRYTA [Suspect]
     Active Substance: DACLIZUMAB
     Route: 058
     Dates: start: 20170905, end: 20180203

REACTIONS (8)
  - Multiple sclerosis relapse [Recovered/Resolved]
  - Fatigue [Unknown]
  - Mood altered [Not Recovered/Not Resolved]
  - Hyperaesthesia [Unknown]
  - Drug ineffective [Unknown]
  - Asthenia [Unknown]
  - Anger [Unknown]
  - Memory impairment [Not Recovered/Not Resolved]

NARRATIVE: CASE EVENT DATE: 20170906
